FAERS Safety Report 8836616 (Version 1)
Quarter: 2012Q4

REPORT INFORMATION
  Report Type: Spontaneous
  Country: US (occurrence: None)
  Receive Date: 20121010
  Receipt Date: 20121010
  Transmission Date: 20130627
  Serious: Yes (Hospitalization, Other)
  Sender: FDA-Public Use
  Company Number: 2012P1059627

PATIENT
  Age: 52 Year
  Sex: Male
  Weight: 90.72 kg

DRUGS (1)
  1. PREDNISONE [Suspect]
     Route: 048
     Dates: start: 201009, end: 20120928

REACTIONS (4)
  - Pneumonia [None]
  - Choking [None]
  - Headache [None]
  - Bronchitis [None]
